FAERS Safety Report 9547449 (Version 1)
Quarter: 2013Q2

REPORT INFORMATION
  Report Type: Spontaneous
  Country: US (occurrence: None)
  Receive Date: 20130606
  Receipt Date: 20130606
  Transmission Date: 20140414
  Serious: Yes (Hospitalization)
  Sender: FDA-Public Use
  Company Number: 163-POMAL-13040767

PATIENT
  Age: 80 Year
  Sex: Female

DRUGS (7)
  1. POMALYST [Suspect]
     Indication: PLASMA CELL MYELOMA
     Dosage: 4 MG, 21 IN 21 D, PO
     Route: 048
     Dates: start: 20130313
  2. ADVAIR HFA(SERETIDEMITE) [Concomitant]
  3. FEXOFENADINE HCL(FEXOFENADINE) [Concomitant]
  4. FLONASE (FLUTICASONE PROPIONATE) [Concomitant]
  5. NEXIUM(ESOMEPRAZOLE) [Concomitant]
  6. TYLENOL(PARACETAMOL) [Concomitant]
  7. ULTRAM(TRAMADOL HYDROCHLORIDE) [Concomitant]

REACTIONS (1)
  - Thrombosis [None]
